FAERS Safety Report 7509475-2 (Version None)
Quarter: 2011Q2

REPORT INFORMATION
  Report Type: 
  Country: None (occurrence: None)
  Receive Date: 20110527
  Receipt Date: 20110523
  Transmission Date: 20111010
  Serious: Yes (Hospitalization)
  Sender: FDA-Public Use
  Company Number: US-TEVA-282884USA

PATIENT
  Age: 39 Year
  Sex: Female

DRUGS (2)
  1. NORTRIPTYLINE HYDROCHLORIDE [Suspect]
     Indication: PAIN
  2. BUPIVACAINE HCL [Suspect]
     Indication: PAIN
     Route: 008

REACTIONS (3)
  - MENTAL STATUS CHANGES [None]
  - TREMOR [None]
  - RESPIRATORY DISTRESS [None]
